FAERS Safety Report 4565213-7 (Version None)
Quarter: 2005Q1

REPORT INFORMATION
  Report Type: 
  Country: None (occurrence: None)
  Receive Date: 20050127
  Receipt Date: 20050127
  Transmission Date: 20050727
  Serious: No
  Sender: FDA-Public Use
  Company Number: None

PATIENT
  Age: 63 Year
  Sex: Female

DRUGS (7)
  1. OMEPRAZOLE [Suspect]
     Indication: GASTROOESOPHAGEAL REFLUX DISEASE
     Dosage: 1 CAPSULE DAILY
     Dates: start: 20051220
  2. CELEXA [Concomitant]
  3. TEMEZEPAM [Concomitant]
  4. FOLIC ACID [Concomitant]
  5. ESTRATEST [Concomitant]
  6. ZETIA [Concomitant]
  7. CRESTOR [Concomitant]

REACTIONS (2)
  - DYSPEPSIA [None]
  - PAIN [None]
